FAERS Safety Report 8410953-2 (Version None)
Quarter: 2012Q2

REPORT INFORMATION
  Report Type: 
  Country: None (occurrence: None)
  Receive Date: 20120605
  Receipt Date: 20120524
  Transmission Date: 20120825
  Serious: Yes (Hospitalization, Disabling, Other)
  Sender: FDA-Public Use
  Company Number: MX-SANOFI-AVENTIS-2012SA037358

PATIENT
  Age: 57 Year
  Sex: Female
  Weight: 49 kg

DRUGS (3)
  1. ARAVA [Suspect]
     Indication: RHEUMATOID ARTHRITIS
     Route: 048
     Dates: start: 20090101
  2. ANTIBIOTICS [Concomitant]
     Route: 048
     Dates: start: 20070101, end: 20100101
  3. KETOPROFEN [Suspect]
     Indication: RHEUMATOID ARTHRITIS
     Route: 048
     Dates: start: 20090101

REACTIONS (5)
  - CONDITION AGGRAVATED [None]
  - WOUND DEHISCENCE [None]
  - TRANSPLANT REJECTION [None]
  - OSTEOMYELITIS [None]
  - PATIENT-DEVICE INCOMPATIBILITY [None]
